FAERS Safety Report 14488520 (Version 2)
Quarter: 2019Q1

REPORT INFORMATION
  Report Type: Report from Study
  Country: US (occurrence: US)
  Receive Date: 20180205
  Receipt Date: 20190301
  Transmission Date: 20190417
  Serious: Yes (Other)
  Sender: FDA-Public Use
  Company Number: US-MALLINCKRODT-T201800277

PATIENT
  Age: 59 Year
  Sex: Female

DRUGS (1)
  1. REPOSITORY CORTICOTROPIN INJECTION [Suspect]
     Active Substance: CORTICOTROPIN
     Indication: ANKYLOSING SPONDYLITIS
     Dosage: 80 UNITS/1 ML, 2 TIMES PER WEEK (WEDNESDAY/ UNSURE)
     Route: 058
     Dates: start: 20180117, end: 201801

REACTIONS (8)
  - Headache [Unknown]
  - Anaphylactic reaction [Unknown]
  - Uveitis [Unknown]
  - Swelling face [Unknown]
  - Nausea [Unknown]
  - Ill-defined disorder [Unknown]
  - Erythema [Unknown]
  - Condition aggravated [Unknown]

NARRATIVE: CASE EVENT DATE: 20180118
